FAERS Safety Report 25257039 (Version 5)
Quarter: 2025Q2

REPORT INFORMATION
  Report Type: Report from Study
  Country: KR (occurrence: KR)
  Receive Date: 20250430
  Receipt Date: 20250617
  Transmission Date: 20250716
  Serious: Yes (Hospitalization, Other)
  Sender: TAKEDA
  Company Number: KR-TAKEDA-2025TUS040131

PATIENT
  Age: 54 Year
  Sex: Male
  Weight: 59 kg

DRUGS (43)
  1. MARIBAVIR [Suspect]
     Active Substance: MARIBAVIR
     Indication: Cytomegalovirus infection
     Dosage: 400 MILLIGRAM, BID
     Dates: start: 20250311, end: 20250418
  2. Vacrax [Concomitant]
     Indication: Viral infection
     Dosage: 200 MILLIGRAM, BID
     Dates: start: 20250311
  3. ACETYLCYSTEINE [Concomitant]
     Active Substance: ACETYLCYSTEINE
     Indication: Oxidative stress
     Dosage: 30000 MILLIGRAM, QD
     Dates: start: 20250131, end: 20250317
  4. RUXOLITINIB [Concomitant]
     Active Substance: RUXOLITINIB
     Indication: Graft versus host disease in gastrointestinal tract
     Dosage: 10 MILLIGRAM, QD
     Dates: start: 20250219
  5. Duloctin [Concomitant]
     Indication: Panic disorder
     Dosage: 30 MILLIGRAM, QD
     Dates: start: 20250127, end: 20250417
  6. DIFLUCAN [Concomitant]
     Active Substance: FLUCONAZOLE
     Indication: Fungal infection
     Dosage: 400 MILLIGRAM, QD
     Dates: start: 20250221, end: 20250312
  7. Kanarb [Concomitant]
     Indication: Blood pressure increased
     Dosage: 120 MILLIGRAM, QD
     Dates: start: 20250127, end: 20250407
  8. Kanarb [Concomitant]
     Dosage: 120 MILLIGRAM, QD
     Dates: start: 20250205, end: 20250330
  9. METHYLPREDNISOLONE [Concomitant]
     Active Substance: METHYLPREDNISOLONE
     Indication: Graft versus host disease in liver
     Dosage: 15 MILLIGRAM, BID
     Dates: start: 20250310, end: 20250316
  10. METHYLPREDNISOLONE [Concomitant]
     Active Substance: METHYLPREDNISOLONE
     Indication: Graft versus host disease in liver
     Dosage: 12 MILLIGRAM, BID
     Dates: start: 20250317, end: 20250325
  11. METHYLPREDNISOLONE [Concomitant]
     Active Substance: METHYLPREDNISOLONE
     Dosage: 8 MILLIGRAM, BID
     Dates: start: 20250326, end: 20250402
  12. METHYLPREDNISOLONE [Concomitant]
     Active Substance: METHYLPREDNISOLONE
     Dosage: 4 MILLIGRAM, BID
     Dates: start: 20250403, end: 20250408
  13. METHYLPREDNISOLONE [Concomitant]
     Active Substance: METHYLPREDNISOLONE
     Dosage: 2 MILLIGRAM, BID
     Dates: start: 20250409, end: 20250413
  14. TRILEPTAL [Concomitant]
     Active Substance: OXCARBAZEPINE
     Indication: Flank pain
     Dosage: 150 MILLIGRAM, BID
     Dates: start: 20250306
  15. NOXAFIL [Concomitant]
     Active Substance: POSACONAZOLE
     Indication: Fungal infection
     Dosage: 300 MILLIGRAM, QD
     Dates: start: 20250313, end: 20250417
  16. Pennel [Concomitant]
     Indication: Graft versus host disease in liver
     Dosage: UNK UNK, TID
     Dates: start: 20241106
  17. LYRICA [Concomitant]
     Active Substance: PREGABALIN
     Indication: Flank pain
     Dosage: 150 MILLIGRAM, BID
     Dates: start: 20250301, end: 20250416
  18. LYRICA [Concomitant]
     Active Substance: PREGABALIN
     Dosage: 75 MILLIGRAM, BID
     Dates: start: 20250314, end: 20250319
  19. TRANEXAMIC ACID [Concomitant]
     Active Substance: TRANEXAMIC ACID
     Indication: Cystitis haemorrhagic
     Dosage: 2500 MILLIGRAM, QD
     Dates: start: 20250127, end: 20250311
  20. TRANEXAMIC ACID [Concomitant]
     Active Substance: TRANEXAMIC ACID
     Dosage: 2500 MILLIGRAM, QD
     Dates: start: 20250318, end: 20250326
  21. TRANSAMIN [Concomitant]
     Active Substance: TRANEXAMIC ACID
     Indication: Cystitis haemorrhagic
     Dosage: 250 MILLIGRAM, TID
     Dates: start: 20250329, end: 20250330
  22. HARNAL [Concomitant]
     Active Substance: TAMSULOSIN HYDROCHLORIDE
     Indication: Hydronephrosis
     Dosage: 0.2 MILLIGRAM, QD
     Dates: start: 20250128, end: 20250418
  23. URSODIOL [Concomitant]
     Active Substance: URSODIOL
     Indication: Graft versus host disease in liver
     Dosage: 400 MILLIGRAM, BID
     Dates: start: 20250130
  24. SULFAMETHOXAZOLE\TRIMETHOPRIM [Concomitant]
     Active Substance: SULFAMETHOXAZOLE\TRIMETHOPRIM
     Indication: Infection prophylaxis
     Dosage: UNK UNK, QD
     Dates: start: 20241029
  25. CEFTAZIDIME [Concomitant]
     Active Substance: CEFTAZIDIME
     Indication: Cystitis haemorrhagic
     Dosage: 2 GRAM, TID
     Dates: start: 20250311, end: 20250319
  26. TRAMADOL HYDROCHLORIDE [Concomitant]
     Active Substance: TRAMADOL HYDROCHLORIDE
     Indication: Post herpetic neuralgia
  27. HUMULIN R [Concomitant]
     Active Substance: INSULIN HUMAN
     Indication: Diabetes mellitus
  28. ORNITHINE ASPARTATE [Concomitant]
     Active Substance: ORNITHINE ASPARTATE
     Indication: Graft versus host disease in liver
     Dosage: 1000 MILLIGRAM, BID
     Dates: start: 20250130, end: 20250314
  29. ORNITHINE ASPARTATE [Concomitant]
     Active Substance: ORNITHINE ASPARTATE
     Dosage: 2000 MILLIGRAM, QD
     Dates: start: 20250315, end: 20250328
  30. Hyaluron [Concomitant]
     Indication: Graft versus host disease in eye
     Dates: start: 20250311, end: 20250407
  31. GATIFLOXACIN [Concomitant]
     Active Substance: GATIFLOXACIN
     Indication: Graft versus host disease in eye
     Dosage: UNK UNK, TID
     Dates: start: 20250226
  32. Predbell [Concomitant]
     Indication: Graft versus host disease in eye
     Dosage: UNK UNK, QID
     Dates: start: 20250313, end: 20250324
  33. NALOXONE HYDROCHLORIDE\OXYCODONE HYDROCHLORIDE [Concomitant]
     Active Substance: NALOXONE HYDROCHLORIDE\OXYCODONE HYDROCHLORIDE
     Indication: Flank pain
     Dosage: UNK UNK, BID
     Dates: start: 20250410
  34. Freepan [Concomitant]
     Indication: Flank pain
     Dosage: 20 MILLIGRAM, TID
     Dates: start: 20250205, end: 20250314
  35. Freepan [Concomitant]
     Dosage: 20 MILLIGRAM, TID
     Dates: start: 20250323, end: 20250328
  36. Tasna [Concomitant]
     Indication: Hyperuricaemia
     Dosage: 500 MILLIGRAM, TID
     Dates: start: 20250331, end: 20250401
  37. Teicocin [Concomitant]
     Indication: Septic shock
     Dosage: 400 MILLIGRAM, QD
     Dates: start: 20250330, end: 20250331
  38. Teicocin [Concomitant]
     Dosage: 400 MILLIGRAM, QD
     Dates: start: 20250406, end: 20250416
  39. Tazoperan [Concomitant]
     Indication: Septic shock
     Dosage: 4.5 GRAM, QID
     Dates: start: 20250330, end: 20250401
  40. CEFTRIAXONE [Concomitant]
     Active Substance: CEFTRIAXONE
     Indication: Bacteraemia
     Dosage: 2 GRAM, QD
     Dates: start: 20250402, end: 20250407
  41. INVANZ [Concomitant]
     Active Substance: ERTAPENEM SODIUM
     Indication: Bacteraemia
     Dosage: 1 GRAM, QD
     Dates: start: 20250408
  42. ALDACTONE [Concomitant]
     Active Substance: SPIRONOLACTONE
     Indication: Blood pressure increased
     Dosage: 12.5 MILLIGRAM, QD
     Dates: start: 20250205, end: 20250328
  43. PANTOPRAZOLE SODIUM [Concomitant]
     Active Substance: PANTOPRAZOLE SODIUM
     Indication: Prophylaxis
     Dosage: 40 MILLIGRAM, QD
     Dates: start: 20250210, end: 20250328

REACTIONS (6)
  - Septic shock [Recovered/Resolved]
  - Bacteraemia [Recovered/Resolved]
  - Hyperkalaemia [Recovered/Resolved]
  - Constipation [Recovered/Resolved]
  - Peroneal nerve palsy [Recovered/Resolved]
  - Oedema peripheral [Recovered/Resolved]

NARRATIVE: CASE EVENT DATE: 20250314
